FAERS Safety Report 12284883 (Version 1)
Quarter: 2016Q2

REPORT INFORMATION
  Report Type: Spontaneous
  Country: US (occurrence: US)
  Receive Date: 20160420
  Receipt Date: 20160420
  Transmission Date: 20160815
  Serious: No
  Sender: FDA-Public Use
  Company Number: US-TEVA-647878USA

PATIENT
  Age: 42 Year
  Sex: Female

DRUGS (2)
  1. ZECUITY [Suspect]
     Active Substance: SUMATRIPTAN SUCCINATE
     Route: 062
     Dates: start: 20160314, end: 20160314
  2. ZECUITY [Suspect]
     Active Substance: SUMATRIPTAN SUCCINATE
     Route: 062

REACTIONS (4)
  - Application site pruritus [Recovered/Resolved]
  - Application site erythema [Recovered/Resolved]
  - Device battery issue [Unknown]
  - Application site discolouration [Unknown]

NARRATIVE: CASE EVENT DATE: 201603
